FAERS Safety Report 5450109-9 (Version None)
Quarter: 2007Q3

REPORT INFORMATION
  Report Type: 
  Country: None (occurrence: None)
  Receive Date: 20070912
  Receipt Date: 20070908
  Transmission Date: 20080115
  Serious: Yes (Death, Hospitalization)
  Sender: FDA-Public Use
  Company Number: US-BRISTOL-MYERS SQUIBB COMPANY-13902069

PATIENT
  Age: 83 Year
  Sex: Female
  Weight: 62 kg

DRUGS (1)
  1. SPRYCEL [Suspect]
     Indication: MALIGNANT MELANOMA
     Dosage: TOTAL DOSE IN 2ND COURSE 1550MG; DATE OF FIRST DOURSE: 20-JUN-2007
     Route: 048
     Dates: start: 20070725, end: 20070809

REACTIONS (1)
  - ATRIOVENTRICULAR BLOCK COMPLETE [None]
